FAERS Safety Report 24075557 (Version 1)
Quarter: 2024Q3

REPORT INFORMATION
  Report Type: Spontaneous
  Country: US (occurrence: US)
  Receive Date: 20240710
  Receipt Date: 20240710
  Transmission Date: 20241016
  Serious: No
  Sender: BRECKENRIDGE
  Company Number: US-Breckenridge Pharmaceutical, Inc.-2159017

PATIENT
  Age: 69 Year
  Sex: Female
  Weight: 55.909 kg

DRUGS (3)
  1. ZOLPIDEM [Suspect]
     Active Substance: ZOLPIDEM TARTRATE
     Indication: Insomnia
     Route: 048
  2. Estrogen cream [Concomitant]
  3. PROGESTERONE [Concomitant]
     Active Substance: PROGESTERONE
     Route: 048

REACTIONS (5)
  - Therapeutic product effect incomplete [Unknown]
  - Gastric dilatation [Unknown]
  - Abdominal pain [Unknown]
  - Weight increased [Not Recovered/Not Resolved]
  - Terminal insomnia [Unknown]
